FAERS Safety Report 5168468-3 (Version None)
Quarter: 2006Q4

REPORT INFORMATION
  Report Type: 
  Country: None (occurrence: None)
  Receive Date: 20061208
  Receipt Date: 20060823
  Transmission Date: 20070319
  Serious: Yes (Death, Hospitalization)
  Sender: FDA-Public Use
  Company Number: PT-AMGEN-UK191030

PATIENT
  Sex: Female
  Weight: 49 kg

DRUGS (9)
  1. NEULASTA [Suspect]
     Indication: CHEMOTHERAPY
     Route: 065
     Dates: start: 20060317, end: 20060809
  2. CYCLOPHOSPHAMIDE [Concomitant]
     Route: 065
     Dates: start: 20060317
  3. MITOXANTRONE [Concomitant]
     Route: 065
     Dates: start: 20060317
  4. VINCRISTINE [Concomitant]
     Route: 065
     Dates: start: 20060317
  5. PREDNISONE TAB [Concomitant]
     Route: 065
     Dates: start: 20060317
  6. BLEOMYCIN [Concomitant]
     Route: 065
     Dates: start: 20060101
  7. DEXAMETHASONE [Concomitant]
     Route: 065
     Dates: start: 20060713
  8. CYTARABINE [Concomitant]
     Route: 065
     Dates: start: 20060713
  9. CISPLATIN [Concomitant]
     Route: 065
     Dates: start: 20060713

REACTIONS (19)
  - ABDOMINAL MASS [None]
  - APLASIA [None]
  - BENIGN COLONIC NEOPLASM [None]
  - CLOSTRIDIAL INFECTION [None]
  - DIARRHOEA [None]
  - DRUG INEFFECTIVE [None]
  - DYSPNOEA [None]
  - ESCHERICHIA INFECTION [None]
  - EYE INJURY [None]
  - FALL [None]
  - FEBRILE NEUTROPENIA [None]
  - HEPATOMEGALY [None]
  - HYPOTENSION [None]
  - LIVER FUNCTION TEST ABNORMAL [None]
  - ORAL CANDIDIASIS [None]
  - RALES [None]
  - RECTAL HAEMORRHAGE [None]
  - SEPTIC SHOCK [None]
  - SPLENOMEGALY [None]
